FAERS Safety Report 5473930-X (Version None)
Quarter: 2007Q3

REPORT INFORMATION
  Report Type: 
  Country: None (occurrence: None)
  Receive Date: 20070831
  Receipt Date: 20070626
  Transmission Date: 20080115
  Serious: No
  Sender: FDA-Public Use
  Company Number: 242412

PATIENT
  Age: 83 Year
  Sex: Female

DRUGS (4)
  1. LUCENTIS [Suspect]
     Indication: MACULAR DEGENERATION
     Dosage: INTRAVITREAL
     Dates: start: 20070601
  2. BLOOD PRESSUREMEDICATION NOS (ANTIHYPERTENSIVE NOS) [Concomitant]
  3. NEXIUM [Concomitant]
  4. AMBIEN [Concomitant]

REACTIONS (2)
  - ABNORMAL SENSATION IN EYE [None]
  - OCULAR HYPERAEMIA [None]
